FAERS Safety Report 4807527-9 (Version None)
Quarter: 2005Q4

REPORT INFORMATION
  Report Type: 
  Country: None (occurrence: None)
  Receive Date: 20051020
  Receipt Date: 20050915
  Transmission Date: 20060501
  Serious: Yes (Other)
  Sender: FDA-Public Use
  Company Number: C-05-0043

PATIENT
  Age: 28 Month
  Sex: Male
  Weight: 12.4286 kg

DRUGS (1)
  1. CYCLOSPORINE [Suspect]
     Indication: NEPHROTIC SYNDROME
     Dosage: 0.35 ML TWICE DAILY
     Dates: start: 20050429, end: 20050516

REACTIONS (2)
  - DRUG ADMINISTRATION ERROR [None]
  - HYPERTRICHOSIS [None]
